FAERS Safety Report 24783966 (Version 1)
Quarter: 2024Q4

REPORT INFORMATION
  Report Type: Report from Study
  Country: ZA (occurrence: ZA)
  Receive Date: 20241227
  Receipt Date: 20241227
  Transmission Date: 20250115
  Serious: Yes (Other)
  Sender: ALEXION PHARMACEUTICALS
  Company Number: ZA-AstraZeneca-CH-00773937A

PATIENT
  Age: 75 Year

DRUGS (14)
  1. DAPAGLIFLOZIN [Suspect]
     Active Substance: DAPAGLIFLOZIN
     Indication: Diabetes mellitus
  2. DAPAGLIFLOZIN [Suspect]
     Active Substance: DAPAGLIFLOZIN
     Route: 048
  3. DAPAGLIFLOZIN [Suspect]
     Active Substance: DAPAGLIFLOZIN
  4. DAPAGLIFLOZIN [Suspect]
     Active Substance: DAPAGLIFLOZIN
     Route: 048
  5. OMEPRAZOLE [Concomitant]
     Active Substance: OMEPRAZOLE
     Indication: Gastrooesophageal reflux disease
     Route: 048
  6. OMEPRAZOLE [Concomitant]
     Active Substance: OMEPRAZOLE
  7. LEVALBUTEROL HYDROCHLORIDE [Concomitant]
     Active Substance: LEVALBUTEROL HYDROCHLORIDE
     Indication: Asthma
     Route: 055
  8. LEVALBUTEROL HYDROCHLORIDE [Concomitant]
     Active Substance: LEVALBUTEROL HYDROCHLORIDE
  9. DORMONOCT [Concomitant]
     Active Substance: LOPRAZOLAM
     Indication: Sleep disorder
     Route: 048
  10. DORMONOCT [Concomitant]
     Active Substance: LOPRAZOLAM
  11. BUDESONIDE [Concomitant]
     Active Substance: BUDESONIDE
     Indication: Rhinitis allergic
     Route: 055
  12. BUDESONIDE [Concomitant]
     Active Substance: BUDESONIDE
  13. Spiractin [Concomitant]
     Indication: Hypertension
     Route: 048
  14. Spiractin [Concomitant]

REACTIONS (1)
  - Cerebrovascular accident [Unknown]
